FAERS Safety Report 7479541-9 (Version None)
Quarter: 2011Q2

REPORT INFORMATION
  Report Type: 
  Country: None (occurrence: None)
  Receive Date: 20110513
  Receipt Date: 20110510
  Transmission Date: 20111010
  Serious: Yes (Death, Disabling, Other)
  Sender: FDA-Public Use
  Company Number: US-PFIZER INC-2011047314

PATIENT
  Sex: Female
  Weight: 50.794 kg

DRUGS (10)
  1. DILAUDID [Suspect]
     Dosage: 0.50 MG FREQUENCY UNKNOWN
     Route: 042
     Dates: start: 20100814
  2. ZOSYN [Suspect]
     Dosage: UNK
     Dates: start: 20100801, end: 20100815
  3. OXYQUINOLINE SULFATE [Suspect]
     Dosage: UNK
  4. XYLOCAINE [Suspect]
     Dosage: UNK
     Dates: start: 20100814
  5. LEVAQUIN [Suspect]
     Dosage: UNK
     Dates: start: 20100814
  6. MORPHINE [Suspect]
     Dosage: UNK
  7. LEVAQUIN [Suspect]
     Dosage: UNK
     Dates: start: 20100814
  8. DILAUDID [Suspect]
     Dosage: 1 MG FREQUENCY UNKNOWN
  9. LIDODERM [Suspect]
     Dosage: UNK
     Route: 062
     Dates: start: 20100814
  10. NORCO [Suspect]
     Dosage: 0.4 MG, UNK
     Dates: start: 20100814

REACTIONS (22)
  - GRIEF REACTION [None]
  - TOXICITY TO VARIOUS AGENTS [None]
  - VIRAL INFECTION [None]
  - BACK PAIN [None]
  - PNEUMONIA [None]
  - VAGINAL HAEMORRHAGE [None]
  - MUSCULAR WEAKNESS [None]
  - CENTRAL NERVOUS SYSTEM LESION [None]
  - DRUG HYPERSENSITIVITY [None]
  - ABDOMINAL DISTENSION [None]
  - OEDEMA PERIPHERAL [None]
  - OEDEMA [None]
  - DEATH [None]
  - BEDRIDDEN [None]
  - PULMONARY EMBOLISM [None]
  - WEIGHT DECREASED [None]
  - LUNG DISORDER [None]
  - URINARY TRACT INFECTION [None]
  - LOSS OF CONSCIOUSNESS [None]
  - JAUNDICE [None]
  - CONTUSION [None]
  - DECREASED APPETITE [None]
